FAERS Safety Report 10010976 (Version 1)
Quarter: 2014Q1

REPORT INFORMATION
  Report Type: Spontaneous
  Country: US (occurrence: US)
  Receive Date: 20140314
  Receipt Date: 20140314
  Transmission Date: 20141002
  Serious: No
  Sender: FDA-Public Use
  Company Number: US-ENDO PHARMACEUTICALS INC.-OXYC20130016

PATIENT
  Sex: Female

DRUGS (3)
  1. OXYCODONE HCL 30MG [Suspect]
     Indication: PAIN
     Route: 048
  2. NEURONTIN [Concomitant]
     Indication: NEURALGIA
     Route: 065
  3. ATIVAN [Concomitant]
     Indication: PRODUCT USED FOR UNKNOWN INDICATION
     Dosage: UNK
     Route: 065

REACTIONS (2)
  - Rash [Unknown]
  - Drug ineffective [Recovered/Resolved]
